FAERS Safety Report 5815558-5 (Version None)
Quarter: 2008Q3

REPORT INFORMATION
  Report Type: 
  Country: None (occurrence: None)
  Receive Date: 20080718
  Receipt Date: 20080630
  Transmission Date: 20090109
  Serious: Yes (Other)
  Sender: FDA-Public Use
  Company Number: NL-GENENTECH-264562

PATIENT

DRUGS (3)
  1. TRASTUZUMAB [Suspect]
     Indication: BREAST CANCER METASTATIC
     Dosage: 4 MG/KG, SINGLE
     Route: 065
  2. TRASTUZUMAB [Suspect]
     Dosage: 2 MG/KG, 1/WEEK
     Route: 065
  3. DOCETAXEL [Suspect]
     Indication: BREAST CANCER METASTATIC
     Dosage: 100 MG/M2, Q3W
     Route: 065

REACTIONS (1)
  - SYNCOPE [None]
